FAERS Safety Report 8936862 (Version 4)
Quarter: 2014Q2

REPORT INFORMATION
  Report Type: Report from Study
  Country: US (occurrence: US)
  Receive Date: 20121130
  Receipt Date: 20140320
  Transmission Date: 20141212
  Serious: Yes (Hospitalization)
  Sender: FDA-Public Use
  Company Number: US-ALEXION-A201202258

PATIENT
  Age: 22 Year
  Sex: Female

DRUGS (8)
  1. SOLIRIS [Suspect]
     Indication: PAROXYSMAL NOCTURNAL HAEMOGLOBINURIA
     Dosage: UNK, QW
     Route: 042
     Dates: start: 201203
  2. SOLIRIS [Suspect]
     Dosage: 900 MG, Q2W
     Route: 042
     Dates: start: 2012
  3. FOLIC ACID [Concomitant]
     Indication: SUPPLEMENTATION THERAPY
     Dosage: 1 MG, QD
     Route: 048
  4. IRON [Concomitant]
     Indication: SUPPLEMENTATION THERAPY
     Dosage: UNK
     Route: 048
  5. VITAMIN B12 [Concomitant]
     Indication: SUPPLEMENTATION THERAPY
     Dosage: 1000 ?G, QD
     Route: 048
  6. LEVOTHYROXINE [Concomitant]
     Dosage: 125 ?G, QD
     Route: 048
  7. ASCORBIC ACID [Concomitant]
     Dosage: 1 DF, QD
     Route: 048
  8. FERROUS GLUCONATE [Suspect]
     Dosage: 27 MG, QD
     Route: 048

REACTIONS (3)
  - Thyroid cancer metastatic [Recovered/Resolved]
  - Blood calcium decreased [Recovered/Resolved]
  - Haemoglobinuria [Unknown]
